FAERS Safety Report 7116261-4 (Version None)
Quarter: 2010Q4

REPORT INFORMATION
  Report Type: 
  Country: None (occurrence: None)
  Receive Date: 20101122
  Receipt Date: 20101111
  Transmission Date: 20110411
  Serious: Yes (Life-Threatening, Hospitalization, Other)
  Sender: FDA-Public Use
  Company Number: A0892024A

PATIENT

DRUGS (2)
  1. ARZERRA [Suspect]
     Dosage: 2000MG MONTHLY
     Route: 042
     Dates: start: 20100101
  2. NO CONCURRENT MEDICATION [Concomitant]

REACTIONS (5)
  - CHEST PAIN [None]
  - PLATELET COUNT DECREASED [None]
  - PNEUMONIA [None]
  - RASH VESICULAR [None]
  - WHITE BLOOD CELL COUNT DECREASED [None]
